FAERS Safety Report 10160791 (Version 1)
Quarter: 2014Q2

REPORT INFORMATION
  Report Type: Report from Study
  Country: US (occurrence: US)
  Receive Date: 20140508
  Receipt Date: 20140508
  Transmission Date: 20141212
  Serious: Yes (Hospitalization, Other)
  Sender: FDA-Public Use
  Company Number: US-TEVA-479618USA

PATIENT
  Age: 46 Year
  Sex: Female
  Weight: 94 kg

DRUGS (2)
  1. DACARBAZINE [Suspect]
     Indication: LEIOMYOSARCOMA
     Dosage: 1200MG/M2 DAY 1 EVERY 21 DAYS
     Route: 041
     Dates: start: 20130411, end: 20130516
  2. NEUPOGEN [Concomitant]

REACTIONS (2)
  - Febrile neutropenia [Recovered/Resolved]
  - Thrombocytopenia [Recovered/Resolved]
